FAERS Safety Report 16820852 (Version 1)
Quarter: 2019Q3

REPORT INFORMATION
  Report Type: Spontaneous
  Country: US (occurrence: US)
  Receive Date: 20190918
  Receipt Date: 20190918
  Transmission Date: 20191005
  Serious: No
  Sender: FDA-Public Use
  Company Number: US-009507513-1909USA005899

PATIENT
  Age: 68 Year
  Sex: Female

DRUGS (1)
  1. PRINIVIL [Suspect]
     Active Substance: LISINOPRIL
     Indication: HYPERTENSION
     Dosage: (ONCE A DAY) QD
     Route: 048
     Dates: start: 20190113

REACTIONS (4)
  - Dizziness [Recovering/Resolving]
  - Wrong technique in product usage process [Unknown]
  - Hypotension [Recovering/Resolving]
  - Cough [Recovering/Resolving]

NARRATIVE: CASE EVENT DATE: 20190113
